FAERS Safety Report 10681088 (Version 2)
Quarter: 2015Q1

REPORT INFORMATION
  Report Type: Spontaneous
  Country: IT (occurrence: IT)
  Receive Date: 20141229
  Receipt Date: 20150216
  Transmission Date: 20150720
  Serious: Yes (Hospitalization)
  Sender: FDA-Public Use
  Company Number: IT-009507513-1412ITA011230

PATIENT
  Age: 57 Year
  Sex: Male

DRUGS (3)
  1. PEGASYS [Interacting]
     Active Substance: PEGINTERFERON ALFA-2A
     Indication: HEPATITIS C
     Dosage: 180 MCG, WEEKLY
     Route: 058
     Dates: start: 20140225, end: 20140515
  2. VICTRELIS [Interacting]
     Active Substance: BOCEPREVIR
     Indication: HEPATITIS C
     Dosage: 2400 MG, DAILY
     Route: 048
     Dates: start: 20140319, end: 20140515
  3. RIBAVIRIN. [Suspect]
     Active Substance: RIBAVIRIN
     Indication: HEPATITIS C
     Dosage: 1000 MG, DAILY
     Route: 048
     Dates: start: 20140225, end: 20140515

REACTIONS (4)
  - Pneumonitis [Unknown]
  - Drug interaction [Unknown]
  - Neutropenia [Recovered/Resolved]
  - Pneumonia [Recovered/Resolved]

NARRATIVE: CASE EVENT DATE: 20140512
